FAERS Safety Report 6451793-3 (Version None)
Quarter: 2009Q4

REPORT INFORMATION
  Report Type: 
  Country: None (occurrence: None)
  Receive Date: 20091120
  Receipt Date: 20091120
  Transmission Date: 20100525
  Serious: No
  Sender: FDA-Public Use
  Company Number: None

PATIENT
  Age: 54 Year
  Sex: Female
  Weight: 98.88 kg

DRUGS (1)
  1. PREGABALIN [Suspect]
     Indication: DEPRESSION
     Dosage: 75 MG BID PO
     Route: 048
     Dates: start: 20090703, end: 20090803

REACTIONS (4)
  - AGITATION [None]
  - HEADACHE [None]
  - HYPERTENSION [None]
  - PARANOIA [None]
